FAERS Safety Report 26076931 (Version 1)
Quarter: 2025Q4

REPORT INFORMATION
  Report Type: Spontaneous
  Country: US (occurrence: None)
  Receive Date: 20251121
  Receipt Date: 20251121
  Transmission Date: 20260117
  Serious: Yes (Life-Threatening)
  Sender: FDA-CTU
  Company Number: None

PATIENT
  Age: 60 Year
  Sex: Female
  Weight: 65.25 kg

DRUGS (5)
  1. WARFARIN [Suspect]
     Active Substance: WARFARIN
     Indication: Antinuclear antibody
  2. OZEMPIC [Concomitant]
     Active Substance: SEMAGLUTIDE
  3. HUMULIN NOS [Concomitant]
     Active Substance: INSULIN HUMAN
  4. 7030 levothyroxine Lasix Repatha Plavix [Concomitant]
  5. 80 mg aspirin [Concomitant]

REACTIONS (2)
  - Tracheal calcification [None]
  - Anxiety [None]

NARRATIVE: CASE EVENT DATE: 20241001
